FAERS Safety Report 9637621 (Version 2)
Quarter: 2013Q4

REPORT INFORMATION
  Report Type: Spontaneous
  Country: US (occurrence: None)
  Receive Date: 20131018
  Receipt Date: 20131021
  Transmission Date: 20140711
  Serious: Yes (Death)
  Sender: FDA-Public Use
  Company Number: 2013AP008657

PATIENT
  Age: 60 Year
  Sex: Male

DRUGS (7)
  1. METFORMIN HCL TABLETS [Suspect]
     Route: 048
  2. ETODOLAC [Suspect]
     Route: 048
  3. MELOXICAM TABLETS [Suspect]
     Route: 048
  4. PRAVASTATIN SODIUM TABLETS USP [Suspect]
     Route: 048
  5. PIOGLITAZONE [Suspect]
     Route: 048
  6. SIMVASTATIN [Suspect]
     Route: 048
  7. ROSUVASTATIN [Suspect]
     Route: 048

REACTIONS (1)
  - Cardio-respiratory arrest [None]
